FAERS Safety Report 11422995 (Version 3)
Quarter: 2015Q3

REPORT INFORMATION
  Report Type: Spontaneous
  Country: JP (occurrence: JP)
  Receive Date: 20150827
  Receipt Date: 20150929
  Transmission Date: 20151125
  Serious: Yes (Death, Hospitalization, Other)
  Sender: FDA-Public Use
  Company Number: JP-PFIZER INC-2015265784

PATIENT
  Age: 91 Year
  Sex: Female

DRUGS (4)
  1. AMLODIN [Suspect]
     Active Substance: AMLODIPINE BESYLATE
     Indication: HYPERTENSION
     Dosage: 5 MG, DAILY
     Route: 048
     Dates: start: 20150803, end: 20150804
  2. GASTER [Concomitant]
     Active Substance: FAMOTIDINE
     Indication: ABDOMINAL PAIN UPPER
     Dosage: 20 MG, DAILY
     Route: 041
     Dates: start: 20150804
  3. HERBAL NOS [Concomitant]
     Active Substance: HERBALS
     Indication: ABDOMINAL DISCOMFORT
     Dosage: 2.5 G, 3X/DAY
     Route: 048
     Dates: start: 20150709, end: 20150804
  4. ELIETEN [Concomitant]
     Active Substance: METOCLOPRAMIDE
     Indication: ABDOMINAL PAIN UPPER
     Dosage: 10 MG, DAILY
     Route: 041
     Dates: start: 20150804

REACTIONS (3)
  - Multi-organ failure [Unknown]
  - Disseminated intravascular coagulation [Unknown]
  - Hepatic function abnormal [Fatal]

NARRATIVE: CASE EVENT DATE: 20150804
